APPROVED DRUG PRODUCT: LISINOPRIL AND HYDROCHLOROTHIAZIDE
Active Ingredient: HYDROCHLOROTHIAZIDE; LISINOPRIL
Strength: 25MG;20MG
Dosage Form/Route: TABLET;ORAL
Application: A076265 | Product #003
Applicant: HIKMA INTERNATIONAL PHARMACEUTICALS LLC
Approved: Jul 8, 2002 | RLD: No | RS: No | Type: DISCN